FAERS Safety Report 8676098 (Version 2)
Quarter: 2013Q3

REPORT INFORMATION
  Report Type: Spontaneous
  Country: US (occurrence: US)
  Receive Date: 20120720
  Receipt Date: 20130715
  Transmission Date: 20140515
  Serious: Yes (Other)
  Sender: FDA-Public Use
  Company Number: US-JNJFOC-20120412198

PATIENT
  Age: 37 Year
  Sex: Male
  Weight: 94.8 kg

DRUGS (17)
  1. REMICADE [Suspect]
     Indication: ARTHROPATHY
     Route: 042
     Dates: start: 20120419
  2. REMICADE [Suspect]
     Indication: ARTHROPATHY
     Dosage: 0,2,4 WEEK??CONFLICTINGLY REPORTED AS 23-OCT-2011
     Route: 042
     Dates: start: 20111024
  3. REMICADE [Suspect]
     Indication: ARTHROPATHY
     Dosage: REACTION ON SECOND DOSE
     Route: 042
     Dates: start: 20120409
  4. REMICADE [Suspect]
     Indication: POLYARTHRITIS
     Dosage: 0,2,4 WEEK??CONFLICTINGLY REPORTED AS 23-OCT-2011
     Route: 042
     Dates: start: 20111024
  5. REMICADE [Suspect]
     Indication: POLYARTHRITIS
     Dosage: REACTION ON SECOND DOSE
     Route: 042
     Dates: start: 20120409
  6. REMICADE [Suspect]
     Indication: POLYARTHRITIS
     Route: 042
     Dates: start: 20120419
  7. REMICADE [Suspect]
     Indication: RHEUMATOID ARTHRITIS
     Dosage: 0,2,4 WEEK??CONFLICTINGLY REPORTED AS 23-OCT-2011
     Route: 042
     Dates: start: 20111024
  8. REMICADE [Suspect]
     Indication: RHEUMATOID ARTHRITIS
     Route: 042
     Dates: start: 20120419
  9. REMICADE [Suspect]
     Indication: RHEUMATOID ARTHRITIS
     Dosage: REACTION ON SECOND DOSE
     Route: 042
     Dates: start: 20120409
  10. IBUPROFEN [Concomitant]
     Route: 065
  11. VICODIN [Concomitant]
     Route: 065
  12. FLEXERIL [Concomitant]
     Route: 065
  13. OMEPRAZOLE [Concomitant]
     Route: 065
  14. MEDROL [Concomitant]
     Route: 065
  15. TYLENOL [Concomitant]
     Indication: PREMEDICATION
     Route: 048
     Dates: start: 20120409
  16. BENADRYL [Concomitant]
     Indication: PREMEDICATION
     Route: 048
     Dates: start: 20120409
  17. SOLU-MEDROL [Concomitant]
     Indication: PREMEDICATION
     Route: 042
     Dates: start: 20120409

REACTIONS (17)
  - Chest pain [Recovered/Resolved]
  - Infusion related reaction [Recovered/Resolved]
  - Dehydration [Unknown]
  - Drug hypersensitivity [Recovered/Resolved]
  - Arthralgia [Recovered/Resolved]
  - Bronchospasm [Recovered/Resolved]
  - Paraesthesia [Recovered/Resolved]
  - Paraesthesia oral [Recovered/Resolved]
  - Dyspnoea [Recovered/Resolved]
  - Chest discomfort [Recovered/Resolved]
  - Hyperhidrosis [Recovered/Resolved]
  - Urticaria [Recovered/Resolved]
  - Sputum increased [Recovered/Resolved]
  - Pruritus [Recovered/Resolved]
  - Hypoaesthesia oral [Recovered/Resolved]
  - Malaise [Unknown]
  - Anxiety [Recovered/Resolved]
